FAERS Safety Report 23535028 (Version 1)
Quarter: 2024Q1

REPORT INFORMATION
  Report Type: Report from Study
  Country: GB (occurrence: GB)
  Receive Date: 20240217
  Receipt Date: 20240217
  Transmission Date: 20240410
  Serious: Yes (Hospitalization, Other)
  Sender: FDA-Public Use
  Company Number: GB-SANDOZ-SDZ2023GB073859

PATIENT
  Sex: Male

DRUGS (1)
  1. OMNITROPE [Suspect]
     Active Substance: SOMATROPIN
     Indication: Hypothalamo-pituitary disorder
     Dosage: 0.5 MG
     Route: 058
     Dates: start: 20231113

REACTIONS (5)
  - Lower respiratory tract infection [Unknown]
  - Scratch [Unknown]
  - Vomiting [Unknown]
  - Arthralgia [Unknown]
  - Product dose omission issue [Unknown]
